FAERS Safety Report 19065140 (Version 1)
Quarter: 2021Q1

REPORT INFORMATION
  Report Type: Spontaneous
  Country: US (occurrence: US)
  Receive Date: 20210327
  Receipt Date: 20210327
  Transmission Date: 20210420
  Serious: No
  Sender: FDA-Public Use
  Company Number: US-009507513-2103USA001564

PATIENT
  Age: 32 Year
  Sex: Female

DRUGS (3)
  1. PRINIVIL [Concomitant]
     Active Substance: LISINOPRIL
     Dosage: UNK
     Route: 048
  2. STERILE DILUENT (WATER) [Suspect]
     Active Substance: WATER
     Indication: MEDICATION DILUTION
     Dosage: UNK
     Route: 047
     Dates: start: 20210303
  3. VARIVAX [Suspect]
     Active Substance: VARICELLA-ZOSTER VIRUS STRAIN OKA/MERCK LIVE ANTIGEN
     Indication: PROPHYLAXIS
     Dosage: .5 MILLILITER
     Route: 047
     Dates: start: 20210303

REACTIONS (4)
  - Exposure via eye contact [Unknown]
  - Ocular discomfort [Not Recovered/Not Resolved]
  - Occupational exposure to product [Unknown]
  - Accidental exposure to product [Unknown]

NARRATIVE: CASE EVENT DATE: 20210303
